FAERS Safety Report 18598063 (Version 1)
Quarter: 2020Q4

REPORT INFORMATION
  Report Type: Other
  Country: FI (occurrence: FI)
  Receive Date: 20201209
  Receipt Date: 20201209
  Transmission Date: 20210114
  Serious: Yes (Life-Threatening, Hospitalization)
  Sender: FDA-Public Use
  Company Number: FI-NOSTRUM LABORATORIES, INC.-2101795

PATIENT
  Age: 60 Year
  Sex: Male

DRUGS (4)
  1. VALPROIC ACID. [Suspect]
     Active Substance: VALPROIC ACID
     Indication: EXTRAPYRAMIDAL DISORDER
     Route: 048
  2. PERPHENAZINE. [Interacting]
     Active Substance: PERPHENAZINE
     Route: 048
  3. ARIPIPRAZOLE. [Concomitant]
     Active Substance: ARIPIPRAZOLE
     Route: 048
  4. QUETIAPINE. [Interacting]
     Active Substance: QUETIAPINE
     Route: 048

REACTIONS (4)
  - Neuroleptic malignant syndrome [None]
  - Labelled drug-drug interaction issue [Recovered/Resolved]
  - Hyponatraemia [Unknown]
  - Extrapyramidal disorder [Recovered/Resolved]
